FAERS Safety Report 7913149-3 (Version None)
Quarter: 2011Q4

REPORT INFORMATION
  Report Type: 
  Country: None (occurrence: None)
  Receive Date: 20111114
  Receipt Date: 20111031
  Transmission Date: 20120403
  Serious: Yes (Hospitalization, Other)
  Sender: FDA-Public Use
  Company Number: US-ELI_LILLY_AND_COMPANY-US201102005184

PATIENT
  Sex: Male

DRUGS (14)
  1. FUROSEMIDE [Concomitant]
     Dosage: 40 MG, QD
  2. FORTEO [Suspect]
     Dosage: 20 UG, QD
     Dates: end: 20110701
  3. DIGOXIN [Concomitant]
     Dosage: UNK DF, QD
     Route: 048
  4. PHENYTOIN SODIUM [Concomitant]
     Dosage: UNK DF, TID
  5. SPIRIVA [Concomitant]
     Dosage: UNK, QD
  6. OMEPRAZOLE [Concomitant]
     Indication: GASTRIC ULCER
     Dosage: 40 MG, QD
  7. LEXAPRO [Concomitant]
     Dosage: 20 MG, QD
  8. FORTEO [Suspect]
     Indication: OSTEOPOROSIS
     Dosage: 20 UG, DAILY (1/D)
     Dates: start: 20110209
  9. ADVAIR DISKUS 100/50 [Concomitant]
     Dosage: UNK, BID
  10. VITAMIN D [Concomitant]
  11. PREDNISONE [Concomitant]
     Dosage: 10 MG, UNK
  12. LISINOPRIL [Concomitant]
     Indication: CARDIAC DISORDER
     Dosage: 5 MG, UNKNOWN
     Route: 048
  13. CLONAZEPAM [Concomitant]
     Dosage: UNK DF, BID
  14. AMIODARONE HCL [Concomitant]
     Dosage: 200 MG, QD

REACTIONS (10)
  - BACK PAIN [None]
  - POSTURE ABNORMAL [None]
  - MOVEMENT DISORDER [None]
  - VIRAL INFECTION [None]
  - ARRHYTHMIA [None]
  - MUSCULOSKELETAL PAIN [None]
  - SPINAL COMPRESSION FRACTURE [None]
  - INTERVERTEBRAL DISC DISORDER [None]
  - ARTHRALGIA [None]
  - ONYCHOMADESIS [None]
